FAERS Safety Report 13246961 (Version 1)
Quarter: 2017Q1

REPORT INFORMATION
  Report Type: Spontaneous
  Country: US (occurrence: US)
  Receive Date: 20170217
  Receipt Date: 20170217
  Transmission Date: 20170428
  Serious: No
  Sender: FDA-Public Use
  Company Number: US-PERRIGO-16US014750

PATIENT
  Age: 38 Year
  Sex: Male
  Weight: 113.38 kg

DRUGS (3)
  1. CETIRIZINE HYDROCHLORIDE. [Suspect]
     Active Substance: CETIRIZINE HYDROCHLORIDE
     Indication: SNEEZING
  2. CETIRIZINE HYDROCHLORIDE. [Suspect]
     Active Substance: CETIRIZINE HYDROCHLORIDE
     Indication: RHINORRHOEA
     Dosage: 10 MG, TWICE IN 5 MINUTES
     Route: 048
     Dates: start: 20160331, end: 20160331
  3. CETIRIZINE HYDROCHLORIDE. [Suspect]
     Active Substance: CETIRIZINE HYDROCHLORIDE
     Indication: NASAL CONGESTION
     Dosage: 10 MG, QD
     Route: 048

REACTIONS (2)
  - Off label use [Not Recovered/Not Resolved]
  - Extra dose administered [Recovered/Resolved]

NARRATIVE: CASE EVENT DATE: 20160331
